FAERS Safety Report 5072136-6 (Version None)
Quarter: 2006Q3

REPORT INFORMATION
  Report Type: 
  Country: None (occurrence: None)
  Receive Date: 20060801
  Receipt Date: 20060721
  Transmission Date: 20061208
  Serious: Yes (Disabling, Other)
  Sender: FDA-Public Use
  Company Number: 2006092092

PATIENT
  Age: 66 Year
  Sex: Female
  Weight: 45.3597 kg

DRUGS (1)
  1. LIPITOR [Suspect]
     Indication: BLOOD CHOLESTEROL INCREASED
     Dosage: 10 MG (10 MG, 1 IN 1 D)

REACTIONS (10)
  - ABASIA [None]
  - ACTIVITIES OF DAILY LIVING IMPAIRED [None]
  - BLOOD CHOLESTEROL INCREASED [None]
  - DRUG INEFFECTIVE [None]
  - IMPAIRED DRIVING ABILITY [None]
  - INSOMNIA [None]
  - PAIN IN EXTREMITY [None]
  - RHABDOMYOLYSIS [None]
  - SCREAMING [None]
  - UNEVALUABLE EVENT [None]
